FAERS Safety Report 24737872 (Version 1)
Quarter: 2024Q4

REPORT INFORMATION
  Report Type: Spontaneous
  Country: CH (occurrence: CH)
  Receive Date: 20241216
  Receipt Date: 20241216
  Transmission Date: 20250115
  Serious: Yes (Other)
  Sender: MERCK
  Company Number: CH-009507513-2412CHE004733

PATIENT
  Sex: Female

DRUGS (1)
  1. KEYTRUDA [Suspect]
     Active Substance: PEMBROLIZUMAB
     Indication: Triple negative breast cancer
     Dosage: 4 CYCLES OF NEOADJUVANT TREATMENT, AND SO FAR ONLY 3 CYCLES OF ADJUVANT
     Dates: start: 20231124, end: 2024

REACTIONS (1)
  - Enterococcal infection [Unknown]

NARRATIVE: CASE EVENT DATE: 20240101
